FAERS Safety Report 8688591 (Version 3)
Quarter: 2013Q3

REPORT INFORMATION
  Report Type: Spontaneous
  Country: US (occurrence: US)
  Receive Date: 20120727
  Receipt Date: 20130822
  Transmission Date: 20140515
  Serious: Yes (Other)
  Sender: FDA-Public Use
  Company Number: US-ASTRAZENECA-2011SE64611

PATIENT
  Age: 26 Year
  Sex: Male
  Weight: 169.2 kg

DRUGS (30)
  1. SEROQUEL [Suspect]
     Indication: BIPOLAR DISORDER
     Route: 048
     Dates: start: 2004
  2. SEROQUEL [Suspect]
     Indication: SLEEP DISORDER
     Route: 048
     Dates: start: 2004
  3. SEROQUEL [Suspect]
     Indication: BIPOLAR I DISORDER
     Route: 048
     Dates: start: 2004
  4. SEROQUEL [Suspect]
     Indication: BIPOLAR II DISORDER
     Route: 048
     Dates: start: 2004
  5. SEROQUEL [Suspect]
     Indication: SLEEP DISORDER
     Route: 048
     Dates: start: 2004
  6. SEROQUEL [Suspect]
     Indication: BIPOLAR DISORDER
     Route: 048
     Dates: start: 2005
  7. SEROQUEL [Suspect]
     Indication: SLEEP DISORDER
     Route: 048
     Dates: start: 2005
  8. SEROQUEL [Suspect]
     Indication: BIPOLAR I DISORDER
     Route: 048
     Dates: start: 2005
  9. SEROQUEL [Suspect]
     Indication: BIPOLAR II DISORDER
     Route: 048
     Dates: start: 2005
  10. SEROQUEL [Suspect]
     Indication: SLEEP DISORDER
     Route: 048
     Dates: start: 2005
  11. SEROQUEL [Suspect]
     Indication: BIPOLAR DISORDER
     Route: 048
  12. SEROQUEL [Suspect]
     Indication: SLEEP DISORDER
     Route: 048
  13. SEROQUEL [Suspect]
     Indication: BIPOLAR I DISORDER
     Route: 048
  14. SEROQUEL [Suspect]
     Indication: BIPOLAR II DISORDER
     Route: 048
  15. SEROQUEL [Suspect]
     Indication: SLEEP DISORDER
     Route: 048
  16. SEROQUEL [Suspect]
     Indication: BIPOLAR DISORDER
     Route: 048
  17. SEROQUEL [Suspect]
     Indication: SLEEP DISORDER
     Route: 048
  18. SEROQUEL [Suspect]
     Indication: BIPOLAR I DISORDER
     Route: 048
  19. SEROQUEL [Suspect]
     Indication: BIPOLAR II DISORDER
     Route: 048
  20. SEROQUEL [Suspect]
     Indication: SLEEP DISORDER
     Route: 048
  21. SEROQUEL [Suspect]
     Indication: BIPOLAR DISORDER
     Route: 048
  22. SEROQUEL [Suspect]
     Indication: SLEEP DISORDER
     Route: 048
  23. SEROQUEL [Suspect]
     Indication: BIPOLAR I DISORDER
     Route: 048
  24. SEROQUEL [Suspect]
     Indication: BIPOLAR II DISORDER
     Route: 048
  25. SEROQUEL [Suspect]
     Indication: SLEEP DISORDER
     Route: 048
  26. GENERIC CELEXA [Concomitant]
     Indication: DEPRESSION
     Route: 048
     Dates: start: 2010
  27. TYLENOL [Concomitant]
     Indication: BACK PAIN
     Route: 048
     Dates: start: 201105
  28. LEXAPRO [Concomitant]
     Dosage: 10 MG OID
     Route: 048
     Dates: end: 2010
  29. LITHIUM [Concomitant]
  30. OTHER MEDICATIONS [Concomitant]

REACTIONS (20)
  - Loss of consciousness [Unknown]
  - Attention deficit/hyperactivity disorder [Unknown]
  - Anxiety [Unknown]
  - Back pain [Unknown]
  - Faecal incontinence [Unknown]
  - Insomnia [Not Recovered/Not Resolved]
  - Impaired work ability [Unknown]
  - Depression [Unknown]
  - Diarrhoea [Not Recovered/Not Resolved]
  - Influenza [Unknown]
  - Memory impairment [Unknown]
  - Aggression [Unknown]
  - Malaise [Unknown]
  - Oropharyngeal pain [Unknown]
  - Withdrawal syndrome [Unknown]
  - Vomiting [Not Recovered/Not Resolved]
  - Intentional drug misuse [Unknown]
  - Off label use [Unknown]
  - Drug dose omission [Unknown]
  - Off label use [Unknown]
